FAERS Safety Report 6441606-8 (Version None)
Quarter: 2009Q4

REPORT INFORMATION
  Report Type: 
  Country: None (occurrence: None)
  Receive Date: 20091116
  Receipt Date: 20091104
  Transmission Date: 20100525
  Serious: Yes (Death, Other)
  Sender: FDA-Public Use
  Company Number: US-ELI_LILLY_AND_COMPANY-US200911001265

PATIENT
  Age: 39 Year
  Sex: Male

DRUGS (2)
  1. CYMBALTA [Suspect]
     Indication: DEPRESSION
     Dosage: 1 D/F, UNK
     Dates: start: 20090901, end: 20091001
  2. CYMBALTA [Suspect]
     Dosage: 1 D/F, UNK
     Dates: start: 20091102

REACTIONS (3)
  - COMPLETED SUICIDE [None]
  - DIZZINESS [None]
  - HOMICIDAL IDEATION [None]
